FAERS Safety Report 8450437-9 (Version None)
Quarter: 2012Q2

REPORT INFORMATION
  Report Type: 
  Country: None (occurrence: None)
  Receive Date: 20120620
  Receipt Date: 20120612
  Transmission Date: 20120825
  Serious: Yes (Death, Hospitalization)
  Sender: FDA-Public Use
  Company Number: SE-ASTELLAS-2012US005498

PATIENT

DRUGS (2)
  1. BEVACIZUMAB [Suspect]
     Indication: COLORECTAL CANCER METASTATIC
     Dosage: UNK
     Route: 065
     Dates: start: 20110122
  2. ERLOTINIB HYDROCHLORIDE [Suspect]
     Indication: COLORECTAL CANCER METASTATIC
     Dosage: UNK
     Route: 048
     Dates: start: 20110122

REACTIONS (4)
  - INFECTION [None]
  - HEPATIC FUNCTION ABNORMAL [None]
  - GENERAL PHYSICAL HEALTH DETERIORATION [None]
  - OFF LABEL USE [None]
